FAERS Safety Report 21203234 (Version 2)
Quarter: 2022Q4

REPORT INFORMATION
  Report Type: Spontaneous
  Country: US (occurrence: US)
  Receive Date: 20220811
  Receipt Date: 20221001
  Transmission Date: 20230112
  Serious: Yes (Other)
  Sender: FDA-Public Use
  Company Number: US-TEVA-2022-US-2062766

PATIENT
  Age: 27 Year
  Sex: Female

DRUGS (4)
  1. MYCOPHENOLIC ACID [Suspect]
     Active Substance: MYCOPHENOLIC ACID
     Indication: Behcet^s syndrome
     Route: 065
  2. HUMAN IMMUNOGLOBULIN G [Suspect]
     Active Substance: HUMAN IMMUNOGLOBULIN G
     Indication: Behcet^s syndrome
     Route: 042
  3. AVONEX [Suspect]
     Active Substance: INTERFERON BETA-1A
     Indication: Behcet^s syndrome
     Route: 065
  4. RITUXIMAB [Suspect]
     Active Substance: RITUXIMAB
     Indication: Behcet^s syndrome
     Route: 065

REACTIONS (4)
  - Vascular device infection [Unknown]
  - Gastric ulcer [Unknown]
  - Osteonecrosis [Unknown]
  - Drug ineffective [Unknown]
